FAERS Safety Report 5191705-6 (Version None)
Quarter: 2006Q4

REPORT INFORMATION
  Report Type: 
  Country: None (occurrence: None)
  Receive Date: 20061219
  Receipt Date: 20061207
  Transmission Date: 20070319
  Serious: Yes (Death)
  Sender: FDA-Public Use
  Company Number: 2006151657

PATIENT
  Sex: Male

DRUGS (2)
  1. NORVASC [Suspect]
  2. ZOLOFT [Suspect]

REACTIONS (1)
  - DEATH [None]
